FAERS Safety Report 25135396 (Version 1)
Quarter: 2025Q1

REPORT INFORMATION
  Report Type: Spontaneous
  Country: RU (occurrence: RU)
  Receive Date: 20250328
  Receipt Date: 20250328
  Transmission Date: 20250408
  Serious: Yes (Other)
  Sender: TAKEDA
  Company Number: RU-LUNDBECK-DKLU4012436

PATIENT
  Age: 33 Year
  Sex: Male

DRUGS (2)
  1. BRINTELLIX [Suspect]
     Active Substance: VORTIOXETINE HYDROBROMIDE
     Indication: Schizophrenia
     Dosage: UNK, QD
     Dates: start: 20250310, end: 20250313
  2. AGOMELATINE [Suspect]
     Active Substance: AGOMELATINE
     Indication: Schizophrenia
     Dosage: UNK, QD
     Dates: start: 20250313, end: 20250318

REACTIONS (2)
  - Drug eruption [Not Recovered/Not Resolved]
  - Product use in unapproved indication [Unknown]

NARRATIVE: CASE EVENT DATE: 20250316
